FAERS Safety Report 4697682-6 (Version None)
Quarter: 2005Q2

REPORT INFORMATION
  Report Type: 
  Country: None (occurrence: None)
  Receive Date: 20050622
  Receipt Date: 20050609
  Transmission Date: 20051028
  Serious: Yes (Other)
  Sender: FDA-Public Use
  Company Number: 2005087959

PATIENT
  Age: 56 Year
  Sex: Female

DRUGS (14)
  1. ALPRAZOLAM [Suspect]
     Indication: ILL-DEFINED DISORDER
     Dosage: 1 MG (0.5 MG, 2 IN 1 D), ORAL
     Route: 048
  2. DETROL LA [Suspect]
     Indication: MICTURITION URGENCY
     Dosage: 4 MG (4 MG, 1 IN 1 D), ORAL
     Route: 048
     Dates: start: 20050501
  3. ARICEPT [Suspect]
     Indication: DEMENTIA ALZHEIMER'S TYPE
     Dosage: 10 MG (10 MG, 1 IN 1 D), ORAL
     Route: 048
     Dates: start: 20050101
  4. PROVIGIL [Concomitant]
  5. FOSAMAX [Concomitant]
  6. LITHIUM CARBONATE [Concomitant]
  7. FLUOXETINE [Concomitant]
  8. ZOCOR [Concomitant]
  9. PROPOXYPHENE HCL AND ACETAMINOPHEN (DEXTROPROPOXYPHENE HYDROCHLORIDE, [Concomitant]
  10. TEMAZEPAM [Concomitant]
  11. TRAZODONE [Concomitant]
  12. VITAMINS [Concomitant]
  13. BENTYL [Concomitant]
  14. SULINDAC [Concomitant]

REACTIONS (13)
  - CONDITION AGGRAVATED [None]
  - DEMENTIA ALZHEIMER'S TYPE [None]
  - DRUG INEFFECTIVE [None]
  - FALL [None]
  - FATIGUE [None]
  - GAIT DISTURBANCE [None]
  - HEADACHE [None]
  - MICTURITION URGENCY [None]
  - MIGRAINE [None]
  - MULTIPLE SCLEROSIS [None]
  - PALPITATIONS [None]
  - STRESS [None]
  - WEIGHT DECREASED [None]
